FAERS Safety Report 13325019 (Version 1)
Quarter: 2017Q1

REPORT INFORMATION
  Report Type: Spontaneous
  Country: US (occurrence: GB)
  Receive Date: 20170310
  Receipt Date: 20170310
  Transmission Date: 20170428
  Serious: Yes (Other)
  Sender: FDA-Public Use
  Company Number: US-SUNOVION-2017SUN001083

PATIENT

DRUGS (6)
  1. BUPIVACAINE. [Suspect]
     Active Substance: BUPIVACAINE
     Indication: ANAESTHESIA
     Dosage: 2.3 ML, UNK
     Route: 008
  2. GLYCOPYRROLATE. [Suspect]
     Active Substance: GLYCOPYRROLATE
     Indication: CARDIAC ARREST
     Dosage: 600 ?G, UNK
     Route: 065
  3. EPINEPHRINE. [Suspect]
     Active Substance: EPINEPHRINE
     Indication: PRODUCT USED FOR UNKNOWN INDICATION
     Dosage: 1 IN 200000
     Route: 008
  4. DIAMORPHINE [Suspect]
     Active Substance: DIACETYLMORPHINE
     Indication: ANAESTHESIA
     Dosage: 300 ?G, UNK
     Route: 008
  5. CLONIDINE. [Suspect]
     Active Substance: CLONIDINE
     Indication: PRODUCT USED FOR UNKNOWN INDICATION
     Dosage: 75 ?G, UNK
     Route: 008
  6. LIDOCAINE. [Suspect]
     Active Substance: LIDOCAINE
     Indication: PRODUCT USED FOR UNKNOWN INDICATION
     Dosage: 20 ML, UNK
     Route: 008

REACTIONS (2)
  - Maternal exposure during pregnancy [Unknown]
  - Cardiac arrest [Recovering/Resolving]
